FAERS Safety Report 6273553-9 (Version None)
Quarter: 2009Q3

REPORT INFORMATION
  Report Type: 
  Country: None (occurrence: None)
  Receive Date: 20090715
  Receipt Date: 20090708
  Transmission Date: 20100115
  Serious: Yes (Hospitalization)
  Sender: FDA-Public Use
  Company Number: 2009JP003191

PATIENT
  Sex: Female

DRUGS (1)
  1. VESICARE [Suspect]
     Indication: DYSURIA
     Dosage: 20 MG, UNKNOWN/D, ORAL
     Route: 048
     Dates: start: 20090519, end: 20090526

REACTIONS (5)
  - DEPRESSED LEVEL OF CONSCIOUSNESS [None]
  - DRUG DISPENSING ERROR [None]
  - OVERDOSE [None]
  - PYREXIA [None]
  - URINARY RETENTION [None]
